FAERS Safety Report 15191666 (Version 1)
Quarter: 2018Q3

REPORT INFORMATION
  Report Type: Spontaneous
  Country: US (occurrence: US)
  Receive Date: 20180626
  Receipt Date: 20180626
  Transmission Date: 20181010
  Serious: No
  Sender: FDA-Public Use
  Company Number: None

PATIENT
  Age: 31 Year
  Sex: Female

DRUGS (2)
  1. WOMEN^S MULTIVITAMIN [Concomitant]
  2. MCKESSON BACITRACIN ZINC [Suspect]
     Active Substance: BACITRACIN ZINC
     Indication: INFECTION PROPHYLAXIS
     Dosage: QUANTITY:.9 GRAMS;?
     Route: 061
     Dates: start: 20180621, end: 20180625

REACTIONS (3)
  - Application site pruritus [None]
  - Rash papular [None]
  - Application site reaction [None]

NARRATIVE: CASE EVENT DATE: 20180626
